FAERS Safety Report 6505695-4 (Version None)
Quarter: 2009Q4

REPORT INFORMATION
  Report Type: 
  Country: None (occurrence: None)
  Receive Date: 20091218
  Receipt Date: 20091207
  Transmission Date: 20100525
  Serious: Yes (Other)
  Sender: FDA-Public Use
  Company Number: B0610237A

PATIENT
  Sex: Male

DRUGS (3)
  1. PAXIL [Suspect]
     Indication: DEPRESSION
     Route: 048
     Dates: start: 20091016, end: 20091129
  2. LENDORMIN [Concomitant]
     Dosage: .5MG PER DAY
     Route: 048
  3. DEPAS [Concomitant]
     Indication: ANXIETY
     Dosage: 3MG PER DAY
     Route: 048

REACTIONS (3)
  - HYPERTHERMIA [None]
  - PAIN [None]
  - PYREXIA [None]
